FAERS Safety Report 19728206 (Version 1)
Quarter: 2021Q3

REPORT INFORMATION
  Report Type: Spontaneous
  Country: BG (occurrence: BG)
  Receive Date: 20210820
  Receipt Date: 20210820
  Transmission Date: 20211014
  Serious: Yes (Hospitalization)
  Sender: FDA-Public Use
  Company Number: BG-TEVA-2021-BG-1942570

PATIENT
  Age: 77 Year
  Sex: Female
  Weight: 83 kg

DRUGS (1)
  1. LEVOXA [Suspect]
     Active Substance: LEVOFLOXACIN
     Indication: URINARY TRACT INFECTION
     Dosage: 500 MG
     Route: 048
     Dates: start: 20210729, end: 20210729

REACTIONS (3)
  - Dyspnoea [Recovered/Resolved]
  - Rash [Recovered/Resolved]
  - Erythema [Recovered/Resolved]

NARRATIVE: CASE EVENT DATE: 20210729
